FAERS Safety Report 7585492-1 (Version None)
Quarter: 2011Q2

REPORT INFORMATION
  Report Type: 
  Country: None (occurrence: None)
  Receive Date: 20110531
  Receipt Date: 20100512
  Transmission Date: 20111010
  Serious: Yes (Hospitalization)
  Sender: FDA-Public Use
  Company Number: WAES 1005USA01472

PATIENT
  Sex: Male

DRUGS (1)
  1. JANUMET [Suspect]
     Indication: DIABETES MELLITUS
     Dosage: /PO
     Route: 048
     Dates: start: 20100101, end: 20100401

REACTIONS (1)
  - LACTIC ACIDOSIS [None]
